FAERS Safety Report 14661853 (Version 1)
Quarter: 2018Q1

REPORT INFORMATION
  Report Type: Spontaneous
  Country: DK (occurrence: DK)
  Receive Date: 20180320
  Receipt Date: 20180320
  Transmission Date: 20180509
  Serious: Yes (Other)
  Sender: FDA-Public Use
  Company Number: DK-AMGEN-DNKSP2018037962

PATIENT
  Age: 73 Year
  Sex: Female
  Weight: 79 kg

DRUGS (4)
  1. FOLIMET [Concomitant]
     Indication: VITAMIN SUPPLEMENTATION
     Dosage: 5 MG, WEEKLY
     Route: 048
     Dates: start: 20100413, end: 20170613
  2. ENBREL [Suspect]
     Active Substance: ETANERCEPT
     Indication: RHEUMATOID ARTHRITIS
     Dosage: 50 MG, WEEKLY
     Route: 058
     Dates: start: 20120607, end: 20170613
  3. METHOTREXATE. [Concomitant]
     Active Substance: METHOTREXATE
     Indication: ARTHRITIS
     Dosage: 10 MG, WEEKLY
     Route: 048
     Dates: start: 20050928, end: 20170613
  4. ENBREL [Suspect]
     Active Substance: ETANERCEPT
     Dosage: UNK
     Route: 065

REACTIONS (1)
  - Bladder cancer [Not Recovered/Not Resolved]

NARRATIVE: CASE EVENT DATE: 20170613
